FAERS Safety Report 4768135-1 (Version None)
Quarter: 2005Q3

REPORT INFORMATION
  Report Type: 
  Country: None (occurrence: None)
  Receive Date: 20050912
  Receipt Date: 20050912
  Transmission Date: 20060218
  Serious: Yes (Other)
  Sender: FDA-Public Use
  Company Number: None

PATIENT
  Age: 4 Year
  Sex: Male
  Weight: 19.0511 kg

DRUGS (1)
  1. NASONEX [Suspect]
     Indication: HYPERSENSITIVITY
     Dosage: 50 MCG IN EACH NOSTRIL ONCE DAILY NASAL
     Route: 045

REACTIONS (2)
  - NASAL DISCOMFORT [None]
  - SKIN HAEMORRHAGE [None]
